FAERS Safety Report 10598216 (Version 1)
Quarter: 2014Q4

REPORT INFORMATION
  Report Type: Spontaneous
  Country: US (occurrence: None)
  Receive Date: 20141119
  Receipt Date: 20141119
  Transmission Date: 20150529
  Serious: Yes (Other)
  Sender: FDA-Public Use
  Company Number: 2014HINLIT1009

PATIENT
  Age: 40 Year
  Sex: Female

DRUGS (8)
  1. MEDODRINE (MIDODRINE) [Concomitant]
  2. ATENOLOL (ATENOLOL) [Concomitant]
     Active Substance: ATENOLOL
  3. TORSEMIDE (TORSEMIDE) UNKNOWN [Concomitant]
     Active Substance: TORSEMIDE
  4. ASPIRIN (ASPIRIN) [Concomitant]
     Active Substance: ASPIRIN
  5. SILDENAFIL. [Suspect]
     Active Substance: SILDENAFIL
     Indication: ASCITES
  6. DILITIAZEM (DILITIAZEM) [Concomitant]
  7. SPIRONOLACTONE (SPIRONOLACTONE) [Concomitant]
     Active Substance: SPIRONOLACTONE
  8. PROGESTIN (PROGESTIN) [Concomitant]

REACTIONS (1)
  - Syncope [None]
